FAERS Safety Report 6141204-X (Version None)
Quarter: 2009Q2

REPORT INFORMATION
  Report Type: 
  Country: None (occurrence: None)
  Receive Date: 20090402
  Receipt Date: 20090326
  Transmission Date: 20091009
  Serious: Yes (Hospitalization, Other)
  Sender: FDA-Public Use
  Company Number: US-ABBOTT-09P-163-0564943-00

PATIENT
  Sex: Male
  Weight: 93.978 kg

DRUGS (6)
  1. HUMIRA [Suspect]
     Indication: CROHN'S DISEASE
     Dosage: LOADING DOSE X4, 2 IN 2 WEEKS
     Route: 058
     Dates: start: 20090101, end: 20090201
  2. HUMIRA [Suspect]
     Route: 058
     Dates: start: 20090311
  3. HUMIRA [Suspect]
  4. PLAVIX [Concomitant]
     Indication: CORONARY ARTERIAL STENT INSERTION
     Route: 048
  5. PROZAC [Concomitant]
     Indication: DEPRESSION
     Route: 048
  6. ASPIRIN [Concomitant]
     Indication: ANTICOAGULANT THERAPY
     Route: 048

REACTIONS (3)
  - BLOOD POTASSIUM DECREASED [None]
  - BLOOD PRESSURE INCREASED [None]
  - GASTROINTESTINAL OEDEMA [None]
